FAERS Safety Report 22019260 (Version 2)
Quarter: 2024Q4

REPORT INFORMATION
  Report Type: Report from Study
  Country: US (occurrence: US)
  Receive Date: 20230222
  Receipt Date: 20241212
  Transmission Date: 20250114
  Serious: Yes (Other)
  Sender: ABBVIE
  Company Number: US-ABBVIE-4314887

PATIENT
  Age: 74 Year
  Sex: Male

DRUGS (1)
  1. SKYRIZI [Suspect]
     Active Substance: RISANKIZUMAB-RZAA
     Indication: Psoriasis
     Route: 058
     Dates: start: 20221110

REACTIONS (3)
  - Gastric infection [Recovering/Resolving]
  - Bladder cancer recurrent [Unknown]
  - Eye infection intraocular [Recovering/Resolving]

NARRATIVE: CASE EVENT DATE: 20221123
